FAERS Safety Report 8526134 (Version 2)
Quarter: 2013Q4

REPORT INFORMATION
  Report Type: Spontaneous
  Country: US (occurrence: US)
  Receive Date: 20120423
  Receipt Date: 20131028
  Transmission Date: 20140711
  Serious: No
  Sender: FDA-Public Use
  Company Number: US-JNJFOC-20120403252

PATIENT
  Age: 33 Year
  Sex: Female

DRUGS (9)
  1. INVEGA SUSTENNA [Suspect]
     Indication: SCHIZOPHRENIA
     Dosage: ONCE
     Route: 030
     Dates: start: 20120326
  2. INVEGA SUSTENNA [Suspect]
     Indication: SCHIZOPHRENIA
     Route: 030
     Dates: start: 20120320
  3. BENZTROPINE [Concomitant]
     Indication: SCHIZOPHRENIA
     Route: 048
  4. HYDROCODONE/ACETAMINOPHEN [Concomitant]
     Dosage: 5 MG/500 MG
     Route: 048
  5. FUROSEMIDE [Concomitant]
     Route: 048
  6. HALDOL [Concomitant]
     Indication: SCHIZOPHRENIA
     Route: 065
  7. LORAZEPAM [Concomitant]
     Dosage: 1 TO 2 MG
     Route: 048
  8. HYDROXYZINE PAMOATE [Concomitant]
     Route: 065
  9. OLANZAPINE [Concomitant]
     Route: 048

REACTIONS (2)
  - Device leakage [Recovered/Resolved]
  - Accidental exposure to product [Recovered/Resolved]
